FAERS Safety Report 4801626-3 (Version None)
Quarter: 2005Q4

REPORT INFORMATION
  Report Type: 
  Country: None (occurrence: None)
  Receive Date: 20051018
  Receipt Date: 20051011
  Transmission Date: 20060501
  Serious: Yes (Life-Threatening)
  Sender: FDA-Public Use
  Company Number: MX-BRISTOL-MYERS SQUIBB COMPANY-13142310

PATIENT
  Age: 45 Year
  Sex: Male

DRUGS (3)
  1. CETUXIMAB [Suspect]
     Indication: NON-SMALL CELL LUNG CANCER
     Dosage: MOST RECENT INFUSION ON 11-AUG-2005(6TH INFUSION).
     Route: 041
     Dates: start: 20050714
  2. CISPLATIN [Suspect]
     Indication: NON-SMALL CELL LUNG CANCER
     Dosage: MOST RECENT INFUSION 04-AUG-2005(2ND INFUSION)
     Route: 042
     Dates: start: 20050714
  3. VINORELBINE [Suspect]
     Indication: NON-SMALL CELL LUNG CANCER
     Dosage: MOST RECENT INFUSION 11-AUG-2005 (4TH INFUSION)
     Route: 042
     Dates: start: 20050714

REACTIONS (1)
  - NEUTROPENIA [None]
